FAERS Safety Report 5013683-2 (Version None)
Quarter: 2006Q2

REPORT INFORMATION
  Report Type: 
  Country: None (occurrence: None)
  Receive Date: 20060525
  Receipt Date: 20060516
  Transmission Date: 20061013
  Serious: Yes (Hospitalization)
  Sender: FDA-Public Use
  Company Number: 163-20785-06050611

PATIENT
  Age: 70 Year
  Sex: Male
  Weight: 92.7 kg

DRUGS (21)
  1. THALOMID [Suspect]
     Indication: MULTIPLE MYELOMA
     Dosage: 200 MG, DAILY; ORAL
     Route: 048
     Dates: start: 20060124
  2. DEXAMETHASONE [Suspect]
     Indication: MULTIPLE MYELOMA
     Dosage: 40 MG, DAILY; ORAL
     Route: 048
     Dates: start: 20060121
  3. XANAX [Concomitant]
  4. NASONEX [Concomitant]
  5. INSULIN [Concomitant]
  6. NOVOLOG [Concomitant]
  7. OXYCONTIN [Concomitant]
  8. COUMADIN [Concomitant]
  9. DOCUSATE SODIUM [Concomitant]
  10. SENOKOT (SENNA FRUIT) (TABLETS) [Concomitant]
  11. ACYCLOVIR [Concomitant]
  12. PRILOSEC [Concomitant]
  13. LIPITOR [Concomitant]
  14. ADVAIR DISKUS 100/50 [Concomitant]
  15. ALBUTEROL [Concomitant]
  16. FLUTICASONE PROPIONATE [Concomitant]
  17. AVODART [Concomitant]
  18. ARANESP [Concomitant]
  19. PERCOCET [Concomitant]
  20. LASIX [Concomitant]
  21. MIRALAX [Concomitant]

REACTIONS (13)
  - ANGINA PECTORIS [None]
  - ANXIETY [None]
  - ASTHMA [None]
  - BUNDLE BRANCH BLOCK RIGHT [None]
  - CONDITION AGGRAVATED [None]
  - DIABETES MELLITUS INADEQUATE CONTROL [None]
  - GASTROOESOPHAGEAL REFLUX DISEASE [None]
  - HYPERKALAEMIA [None]
  - HYPONATRAEMIA [None]
  - POSTNASAL DRIP [None]
  - RENAL FAILURE [None]
  - RHINORRHOEA [None]
  - WEIGHT DECREASED [None]
